FAERS Safety Report 18449848 (Version 1)
Quarter: 2020Q4

REPORT INFORMATION
  Report Type: Report from Study
  Country: US (occurrence: US)
  Receive Date: 20201030
  Receipt Date: 20201030
  Transmission Date: 20210114
  Serious: Yes (Hospitalization, Other)
  Sender: FDA-Public Use
  Company Number: US-GILEAD-2020-0492719

PATIENT
  Age: 72 Year
  Sex: Female
  Weight: 66.5 kg

DRUGS (19)
  1. CEFEPIME [Concomitant]
     Active Substance: CEFEPIME HYDROCHLORIDE
     Dates: start: 20200814, end: 20200816
  2. PROPOFOL. [Concomitant]
     Active Substance: PROPOFOL
     Indication: SEDATION
     Dosage: 0.418
     Dates: start: 20200724
  3. LOPRESSOR [Concomitant]
     Active Substance: METOPROLOL TARTRATE
     Indication: HYPERTENSION
     Dosage: PRN
     Dates: start: 20200724
  4. VORICONAZOLE. [Concomitant]
     Active Substance: VORICONAZOLE
     Indication: ASPERGILLUS INFECTION
     Dosage: 480 MG
     Dates: start: 20200814, end: 20200815
  5. REMDESIVIR. [Suspect]
     Active Substance: REMDESIVIR
     Indication: COVID-19 PNEUMONIA
     Dosage: RDV LOADING DOSE AND A ONCE-DAILY MAINTENANCE DOSE OF REMDESIVIR FROM DAYS 2-10
     Route: 042
     Dates: start: 20200725
  6. ESOMEPRAZOLE. [Concomitant]
     Active Substance: ESOMEPRAZOLE MAGNESIUM
     Indication: GASTROINTESTINAL DISORDER PROPHYLAXIS
     Dosage: 20 MG
     Dates: start: 20200731, end: 20200820
  7. OXYGEN. [Concomitant]
     Active Substance: OXYGEN
     Dates: start: 20200824
  8. TOCILIZUMAB. [Suspect]
     Active Substance: TOCILIZUMAB
     Indication: COVID-19 PNEUMONIA
     Dosage: FOLLOWED BY ONE INFUSION OF TCZ ON DAY 1
     Route: 042
     Dates: start: 20200725
  9. ONDANSETRON [Concomitant]
     Active Substance: ONDANSETRON
     Indication: VOMITING
  10. LOVENOX [Concomitant]
     Active Substance: ENOXAPARIN SODIUM
     Indication: CORONARY ARTERY DISEASE
     Dosage: OTHER
     Dates: start: 20200723
  11. SILDENAFIL. [Concomitant]
     Active Substance: SILDENAFIL
     Indication: HYPERTENSION
     Dosage: 20 MG
     Dates: start: 20200808, end: 20200811
  12. REMDESIVIR. [Suspect]
     Active Substance: REMDESIVIR
     Dosage: ON 03/AUG/2020, RECEIVED MOST RECENT DOSE PRIOR TO SAE ONSET
     Route: 042
     Dates: start: 20200725
  13. ONDANSETRON [Concomitant]
     Active Substance: ONDANSETRON
     Indication: NAUSEA
     Dosage: PRN
     Dates: start: 20200723
  14. INSULIN [Concomitant]
     Active Substance: INSULIN NOS
     Indication: DIABETES MELLITUS
     Dosage: 50 UNITS OTHER
     Dates: start: 20200725
  15. TOCILIZUMAB. [Suspect]
     Active Substance: TOCILIZUMAB
     Indication: COVID-19 PNEUMONIA
     Dosage: ON THE SAME DATE, RECEIVED MOST RECENT DOSE MEDICATION
     Route: 042
     Dates: start: 20200725
  16. VORICONAZOLE. [Concomitant]
     Active Substance: VORICONAZOLE
     Dosage: 320 MG
     Dates: start: 20200815, end: 20200816
  17. CHLORHEXIDINE [Concomitant]
     Active Substance: CHLORHEXIDINE
     Dates: start: 20200723, end: 20200824
  18. ATORVASTATIN [Concomitant]
     Active Substance: ATORVASTATIN
     Indication: CORONARY ARTERY DISEASE
     Dosage: 40 MG
     Dates: start: 20200723
  19. ACETAMINOPHEN. [Concomitant]
     Active Substance: ACETAMINOPHEN
     Indication: PYREXIA
     Dosage: PRN
     Dates: start: 20200723

REACTIONS (4)
  - Urinary tract infection [Recovered/Resolved]
  - Bacteraemia [Recovered/Resolved]
  - Sepsis [Recovered/Resolved]
  - Acute kidney injury [Not Recovered/Not Resolved]

NARRATIVE: CASE EVENT DATE: 20200815
